FAERS Safety Report 14814632 (Version 7)
Quarter: 2019Q2

REPORT INFORMATION
  Report Type: Report from Study
  Country: ES (occurrence: ES)
  Receive Date: 20180426
  Receipt Date: 20190502
  Transmission Date: 20190711
  Serious: Yes (Hospitalization, Other)
  Sender: FDA-Public Use
  Company Number: ES-MYLANLABS-2018M1027128

PATIENT
  Age: 87 Year
  Sex: Male

DRUGS (22)
  1. QUETIAPINE MYLAN [Suspect]
     Active Substance: QUETIAPINE
     Indication: PRODUCT USED FOR UNKNOWN INDICATION
     Dosage: 75 MILLIGRAM, QD, 25 MG, TID (221), DRUG INTERVAL DOSAGE UNIT NUMBER:1 DAY
     Route: 065
  2. VILDAGLIPTIN [Suspect]
     Active Substance: VILDAGLIPTIN
     Dosage: 50 MILLIGRAM, BID (Q12H) (100 MG, QD)
     Route: 048
  3. FUROSEMIDA MYLAN 40 MG COMPRIMIDOS EFG [Suspect]
     Active Substance: FUROSEMIDE
     Indication: PRODUCT USED FOR UNKNOWN INDICATION
     Dosage: 40 MILLIGRAM, QD (40 MG, QD, DRUG INTERVAL DOSAGE UNIT NUMBER:1 DAY)
     Route: 065
  4. COMBIPRASAL [Suspect]
     Active Substance: ALBUTEROL SULFATE\IPRATROPIUM BROMIDE
     Indication: PRODUCT USED FOR UNKNOWN INDICATION
     Dosage: Q6H
     Route: 045
  5. COMBIPRASAL [Suspect]
     Active Substance: ALBUTEROL SULFATE\IPRATROPIUM BROMIDE
     Dosage: 4 DF, QD,  1 DF, Q6H,DRUG INTERVAL DOSAGE UNIT NUMBER:1 DAY
  6. SEGURIL [Concomitant]
     Active Substance: FUROSEMIDE
     Indication: PRODUCT USED FOR UNKNOWN INDICATION
     Dosage: 40 MG, QD
  7. VILDAGLIPTIN [Suspect]
     Active Substance: VILDAGLIPTIN
     Indication: TYPE 2 DIABETES MELLITUS
     Dosage: 1 DF, QD, DRUG INTERVAL DOSAGE UNIT NUMBER:1 DAY
     Route: 065
  8. MIRABEGRON [Suspect]
     Active Substance: MIRABEGRON
     Indication: PRODUCT USED FOR UNKNOWN INDICATION
     Dosage: 1 DF, QD, DRUG INTERVAL DOSAGE UNIT NUMBER:1 DAY
     Route: 065
  9. FENTANYL. [Suspect]
     Active Substance: FENTANYL
     Indication: DYSPNOEA
     Dosage: UNK
     Route: 048
  10. LATANOPROST. [Suspect]
     Active Substance: LATANOPROST
     Indication: PRODUCT USED FOR UNKNOWN INDICATION
     Dosage: 2 GTT, QD, DRUG INTERVAL DOSAGE UNIT NUMBER:1 DAY
     Route: 065
  11. APIXABAN [Suspect]
     Active Substance: APIXABAN
     Indication: CEREBROVASCULAR ACCIDENT PROPHYLAXIS
     Dosage: 5 MILLIGRAM, QD, (2.5 MG, BID, DRUG INTERVAL DOSAGE UNIT NUMBER:1 DAY)
     Route: 065
  12. IPRATROPIUM BROMIDE. [Suspect]
     Active Substance: IPRATROPIUM BROMIDE
     Indication: PRODUCT USED FOR UNKNOWN INDICATION
     Dosage: 4 DOSAGE FORM, QD (1 DF (UNITS UNSPECIFIED), Q6H)
     Route: 045
  13. BUDESONIDE. [Concomitant]
     Active Substance: BUDESONIDE
     Indication: PRODUCT USED FOR UNKNOWN INDICATION
     Dosage: UNK, BID
     Route: 045
  14. BREAKYL [Suspect]
     Active Substance: FENTANYL
     Indication: DYSPNOEA
     Dosage: UNK
     Route: 048
     Dates: start: 201801
  15. BUDESONIDE. [Suspect]
     Active Substance: BUDESONIDE
     Indication: PRODUCT USED FOR UNKNOWN INDICATION
     Dosage: 2 DF, QD, DRUG INTERVAL DOSAGE UNIT NUMBER:1 DAY
     Route: 045
  16. FUROSEMIDA MYLAN 40 MG COMPRIMIDOS EFG [Suspect]
     Active Substance: FUROSEMIDE
     Dosage: 1 DOSAGE FORM, QD
     Route: 065
  17. LATANOPROST. [Concomitant]
     Active Substance: LATANOPROST
     Indication: PRODUCT USED FOR UNKNOWN INDICATION
     Dosage: 2 GTT, QD
  18. XILIARX 50 MG COMPRIMIDOS [Concomitant]
     Indication: PRODUCT USED FOR UNKNOWN INDICATION
     Dosage: 50 MG, BID
  19. BUDESONIDE. [Suspect]
     Active Substance: BUDESONIDE
     Dosage: 2, UNK, QD
     Route: 065
  20. FLUOXETINA COMBIX 20 MG CAPSULAS DURAS EFG [Suspect]
     Active Substance: FLUOXETINE HYDROCHLORIDE
     Indication: PRODUCT USED FOR UNKNOWN INDICATION
     Dosage: 20 MG, QD, DRUG INTERVAL DOSAGE UNIT NUMBER:1 DAY
     Route: 065
  21. IPRATROPIUM BROMIDE. [Suspect]
     Active Substance: IPRATROPIUM BROMIDE
     Dosage: 1 DOSAGE FORM, Q6H
     Route: 045
  22. ROCOZ                              /01270902/ [Concomitant]
     Active Substance: QUETIAPINE FUMARATE
     Indication: PRODUCT USED FOR UNKNOWN INDICATION
     Dosage: 25 MG, TID (2-2-1)

REACTIONS (16)
  - Blood pressure abnormal [Unknown]
  - Product use in unapproved indication [Unknown]
  - Respiratory tract infection [Unknown]
  - Respiratory failure [Recovered/Resolved]
  - Oedema peripheral [Unknown]
  - Lung infection [Unknown]
  - Tachypnoea [Unknown]
  - Dyspnoea [Recovered/Resolved]
  - Heart rate abnormal [Unknown]
  - Bone marrow oedema [Unknown]
  - C-reactive protein abnormal [Unknown]
  - Bronchiectasis [Unknown]
  - Peripheral venous disease [Unknown]
  - Arrhythmia [Unknown]
  - White blood cell count abnormal [Unknown]
  - Haemoglobin abnormal [Unknown]

NARRATIVE: CASE EVENT DATE: 201801
